FAERS Safety Report 6026236-4 (Version None)
Quarter: 2008Q4

REPORT INFORMATION
  Report Type: 
  Country: None (occurrence: None)
  Receive Date: 20081230
  Receipt Date: 20081216
  Transmission Date: 20090506
  Serious: Yes (Other)
  Sender: FDA-Public Use
  Company Number: 2008-04778

PATIENT
  Age: 55 Year
  Sex: Female

DRUGS (1)
  1. VELCADE [Suspect]
     Indication: MULTIPLE MYELOMA
     Dosage: 1.3 MG/M2 UNK UNKNOWN
     Dates: start: 20080401, end: 20081201

REACTIONS (2)
  - DISEASE PROGRESSION [None]
  - PLASMACYTOMA [None]
